FAERS Safety Report 8618448-8 (Version None)
Quarter: 2012Q3

REPORT INFORMATION
  Report Type: 
  Country: None (occurrence: None)
  Receive Date: 20120824
  Receipt Date: 20120808
  Transmission Date: 20120928
  Serious: Yes (Congenital Anomaly)
  Sender: FDA-Public Use
  Company Number: GB-MSD-1007GBR00039B1

PATIENT

DRUGS (6)
  1. LAMIVUDINE [Concomitant]
     Dosage: UNK
     Route: 064
     Dates: start: 20090101, end: 20100610
  2. KALETRA [Concomitant]
     Route: 064
     Dates: start: 20100610
  3. NEVIRAPINE [Concomitant]
     Dosage: UNK
     Route: 064
     Dates: start: 20090101, end: 20100610
  4. ISENTRESS [Suspect]
     Indication: HIV INFECTION
     Dosage: 800 MG, QD
     Route: 064
     Dates: start: 20100610
  5. ZIDOVUDINE [Concomitant]
     Dosage: UNK
     Route: 064
     Dates: start: 20090101, end: 20100610
  6. TENOFOVIR DISOPROXIL FUMARATE [Concomitant]
     Route: 064
     Dates: start: 20100610

REACTIONS (2)
  - VOLVULUS [None]
  - FOETAL EXPOSURE DURING PREGNANCY [None]
